FAERS Safety Report 5624428-7 (Version None)
Quarter: 2008Q1

REPORT INFORMATION
  Report Type: 
  Country: None (occurrence: None)
  Receive Date: 20080213
  Receipt Date: 20080205
  Transmission Date: 20080703
  Serious: Yes (Other)
  Sender: FDA-Public Use
  Company Number: GB-SANOFI-SYNTHELABO-A01200800456

PATIENT
  Age: 60 Year
  Sex: Male
  Weight: 77.9 kg

DRUGS (3)
  1. DEXAMETHASONE TAB [Concomitant]
     Indication: PREMEDICATION
     Route: 042
  2. ONDANSETRON [Concomitant]
     Indication: PREMEDICATION
     Route: 042
  3. ELOXATIN [Suspect]
     Indication: COLORECTAL CANCER
     Route: 041
     Dates: start: 20071227, end: 20071227

REACTIONS (1)
  - LARYNGOSPASM [None]
